FAERS Safety Report 10145707 (Version 1)
Quarter: 2014Q2

REPORT INFORMATION
  Report Type: Spontaneous
  Country: US (occurrence: US)
  Receive Date: 20140501
  Receipt Date: 20140501
  Transmission Date: 20141212
  Serious: No
  Sender: FDA-Public Use
  Company Number: US-ABBVIE-13P-163-1137636-00

PATIENT
  Age: 58 Year
  Sex: Female

DRUGS (6)
  1. CREON [Suspect]
     Indication: PANCREATIC INSUFFICIENCY
     Dosage: 3 CAPS WITH MEALS, 2 WITH SNACK
     Dates: start: 201207
  2. INDERAL [Concomitant]
     Indication: MIGRAINE PROPHYLAXIS
  3. AMITRIPTYLINE [Concomitant]
     Indication: MIGRAINE PROPHYLAXIS
  4. FLEXERIL [Concomitant]
     Indication: MUSCLE SPASMS
  5. CLONOPIN [Concomitant]
     Indication: INSOMNIA
  6. PRILOSEC [Concomitant]
     Indication: PRODUCT USED FOR UNKNOWN INDICATION

REACTIONS (1)
  - Diarrhoea [Not Recovered/Not Resolved]
